FAERS Safety Report 15530832 (Version 2)
Quarter: 2019Q2

REPORT INFORMATION
  Report Type: Spontaneous
  Country: FR (occurrence: FR)
  Receive Date: 20181018
  Receipt Date: 20190521
  Transmission Date: 20190711
  Serious: Yes (Other)
  Sender: FDA-Public Use
  Company Number: FR-BRISTOL-MYERS SQUIBB COMPANY-BMS-2018-095985

PATIENT
  Age: 61 Year
  Sex: Male
  Weight: 90 kg

DRUGS (1)
  1. OPDIVO [Suspect]
     Active Substance: NIVOLUMAB
     Indication: SQUAMOUS CELL CARCINOMA OF PHARYNX
     Dosage: 240 MG, Q2WK
     Route: 041
     Dates: start: 20180713

REACTIONS (4)
  - Thyroid disorder [Recovering/Resolving]
  - Psoriasis [Recovering/Resolving]
  - Rheumatoid arthritis [Recovering/Resolving]
  - Eosinophilic cellulitis [Recovering/Resolving]

NARRATIVE: CASE EVENT DATE: 20180829
